FAERS Safety Report 18679129 (Version 1)
Quarter: 2020Q4

REPORT INFORMATION
  Report Type: Spontaneous
  Country: US (occurrence: US)
  Receive Date: 20201230
  Receipt Date: 20201230
  Transmission Date: 20210114
  Serious: Yes (Disabling)
  Sender: FDA-Public Use
  Company Number: US-SA-2020SA373791

PATIENT

DRUGS (1)
  1. DUPIXENT [Suspect]
     Active Substance: DUPILUMAB
     Indication: DERMATITIS ATOPIC
     Dosage: UNK

REACTIONS (4)
  - Arthralgia [Unknown]
  - Insomnia [Unknown]
  - Impaired work ability [Unknown]
  - Myalgia [Unknown]

NARRATIVE: CASE EVENT DATE: 20190711
